FAERS Safety Report 15727380 (Version 1)
Quarter: 2018Q4

REPORT INFORMATION
  Report Type: Spontaneous
  Country: CA (occurrence: CA)
  Receive Date: 20181217
  Receipt Date: 20181217
  Transmission Date: 20190205
  Serious: Yes (Hospitalization, Other)
  Sender: FDA-Public Use
  Company Number: CA-ALKEM LABORATORIES LIMITED-CA-ALKEM-2018-07437

PATIENT
  Age: 43 Year
  Sex: Female

DRUGS (4)
  1. ATENOLOL. [Concomitant]
     Active Substance: ATENOLOL
     Indication: HYPERTENSION
     Dosage: 50 MG, QD
     Route: 065
  2. METFORMIN HYDROCHLORIDE. [Suspect]
     Active Substance: METFORMIN HYDROCHLORIDE
     Indication: PRODUCT USED FOR UNKNOWN INDICATION
     Dosage: 180 TABLETS (500 MG EACH, 90 GRAMS TOTAL)
     Route: 048
  3. MIRTAZAPINE. [Concomitant]
     Active Substance: MIRTAZAPINE
     Indication: ANXIETY
     Dosage: 30 MG, QD
     Route: 065
  4. LORAZEPAM. [Concomitant]
     Active Substance: LORAZEPAM
     Indication: ANXIETY
     Dosage: 2 MG, TID
     Route: 065

REACTIONS (1)
  - Intentional overdose [Recovering/Resolving]
